FAERS Safety Report 20994047 (Version 3)
Quarter: 2025Q3

REPORT INFORMATION
  Report Type: Spontaneous
  Country: EU (occurrence: EU)
  Receive Date: 20220622
  Receipt Date: 20250718
  Transmission Date: 20251021
  Serious: Yes (Death, Other)
  Sender: MYLAN
  Company Number: EU-STADA-250744

PATIENT
  Age: 56 Year
  Sex: Male

DRUGS (3)
  1. FINGOLIMOD [Suspect]
     Active Substance: FINGOLIMOD
     Indication: Multiple sclerosis
     Dosage: 0.5 MILLIGRAM, QD
     Dates: start: 20110803
  2. DRONABINOL [Suspect]
     Active Substance: DRONABINOL
     Indication: Muscle spasms
  3. CANNABIDIOL [Suspect]
     Active Substance: CANNABIDIOL
     Indication: Muscle spasms

REACTIONS (1)
  - Cardiac arrest [Fatal]

NARRATIVE: CASE EVENT DATE: 20161202
